FAERS Safety Report 9511690 (Version 1)
Quarter: 2013Q1

REPORT INFORMATION
  Report Type: Spontaneous
  Country: US (occurrence: None)
  Receive Date: 20130305
  Receipt Date: 20130305
  Transmission Date: 20140127
  Serious: Yes (Other)
  Sender: FDA-Public Use
  Company Number: 163-21880-12030582

PATIENT
  Age: 58 Year
  Sex: Female

DRUGS (9)
  1. REVLIMID (LENALIDOMIDE) (CAPSULES) [Suspect]
     Indication: PLASMA CELL MYELOMA
     Dosage: 10 MG, DAILY X21/28D, PO?
     Route: 048
     Dates: start: 201104, end: 201107
  2. FLUTICASONE (FLUTICASEONE) (UNKNOWN) [Concomitant]
  3. ACYCLOVIR (ACICLOVIR) (UNKNOWN) [Concomitant]
  4. OMEPRAZOLE (OMEPRAZOLE) (UNKNOWN) [Concomitant]
  5. BUPROPION (BUPROPION) (UNKNOWN) (BUPROPION) [Concomitant]
  6. CETIRIZINE (CETIRIZINE) (UNKNOWN) [Concomitant]
  7. LORAZEPAM (LORAZEPAM) (UNKNOWN) [Concomitant]
  8. FILGRASTIM (FILGRASTIM) (UNKNOWN) [Concomitant]
  9. ASA (ACETYLSALICYLIC ACID) (UNKNOWN) [Concomitant]

REACTIONS (1)
  - Neutropenia [None]
